FAERS Safety Report 10426944 (Version 1)
Quarter: 2014Q3

REPORT INFORMATION
  Report Type: Spontaneous
  Country: US (occurrence: None)
  Receive Date: 20140902
  Receipt Date: 20140902
  Transmission Date: 20150326
  Serious: Yes (Life-Threatening, Hospitalization)
  Sender: FDA-Public Use
  Company Number: None

PATIENT
  Age: 49 Year
  Sex: Female
  Weight: 76.2 kg

DRUGS (2)
  1. ASTHMANEFRIN [Concomitant]
     Active Substance: RACEPINEPHRINE HYDROCHLORIDE
  2. ASTHMANEFRIN [Suspect]
     Active Substance: RACEPINEPHRINE HYDROCHLORIDE
     Indication: ASTHMA
     Dosage: ONCE?0.5 ML, PRN/AS NEEDED, RESPIRATORY
     Route: 055

REACTIONS (2)
  - Respiratory arrest [None]
  - Loss of consciousness [None]

NARRATIVE: CASE EVENT DATE: 20140901
